FAERS Safety Report 9497044 (Version 2)
Quarter: 2013Q3

REPORT INFORMATION
  Report Type: Report from Study
  Country: US (occurrence: US)
  Receive Date: 20130904
  Receipt Date: 20130916
  Transmission Date: 20140515
  Serious: Yes (Other)
  Sender: FDA-Public Use
  Company Number: US-ROCHE-1269695

PATIENT
  Sex: Male

DRUGS (7)
  1. RITUXIMAB [Suspect]
     Indication: LYMPHOMA
     Route: 042
  2. DIPHENHYDRAMINE HCL [Concomitant]
     Route: 042
  3. PALONOSETRON [Concomitant]
     Route: 042
  4. DEXAMETHASONE SODIUM PHOSPHATE [Concomitant]
     Route: 042
  5. CYCLOPHOSPHAMIDE [Concomitant]
     Route: 042
  6. DOXORUBICIN [Concomitant]
     Route: 042
  7. VINCRISTINE SULFATE [Concomitant]
     Route: 042

REACTIONS (4)
  - Thrombocytosis [Unknown]
  - Essential hypertension [Unknown]
  - Anaemia [Unknown]
  - Laboratory test abnormal [Unknown]
